FAERS Safety Report 6871044-5 (Version None)
Quarter: 2010Q3

REPORT INFORMATION
  Report Type: 
  Country: None (occurrence: None)
  Receive Date: 20100723
  Receipt Date: 20100712
  Transmission Date: 20110219
  Serious: Yes (Death, Other)
  Sender: FDA-Public Use
  Company Number: US-PFIZER INC-2007074758

PATIENT
  Sex: Male

DRUGS (2)
  1. CHANTIX [Suspect]
     Indication: SMOKING CESSATION THERAPY
     Dosage: 0.5 MG, 1X/DAY
     Dates: start: 20070827, end: 20070829
  2. CHANTIX [Suspect]
     Dosage: 1 MG, 2X/DAY
     Dates: start: 20070830, end: 20070902

REACTIONS (13)
  - ABNORMAL DREAMS [None]
  - AFFECT LABILITY [None]
  - AGGRESSION [None]
  - AGITATION [None]
  - ALCOHOL USE [None]
  - ANGER [None]
  - DEPRESSED MOOD [None]
  - DYSPHEMIA [None]
  - HALLUCINATION [None]
  - HOSTILITY [None]
  - NIGHTMARE [None]
  - PHYSICAL ASSAULT [None]
  - SOCIAL AVOIDANT BEHAVIOUR [None]
